FAERS Safety Report 11329532 (Version 1)
Quarter: 2015Q3

REPORT INFORMATION
  Report Type: Spontaneous
  Country: US (occurrence: None)
  Receive Date: 20150730
  Receipt Date: 20150730
  Transmission Date: 20151125
  Serious: Yes (Hospitalization)
  Sender: FDA-Public Use
  Company Number: None

PATIENT
  Age: 59 Year
  Sex: Female
  Weight: 114.31 kg

DRUGS (1)
  1. KEYTRUDA [Suspect]
     Active Substance: PEMBROLIZUMAB

REACTIONS (8)
  - Aplasia pure red cell [None]
  - Fatigue [None]
  - Dizziness [None]
  - Dyspnoea exertional [None]
  - Blood potassium decreased [None]
  - Autoimmune disorder [None]
  - Asthenia [None]
  - Dehydration [None]

NARRATIVE: CASE EVENT DATE: 20150209
